FAERS Safety Report 13717585 (Version 1)
Quarter: 2017Q3

REPORT INFORMATION
  Report Type: Spontaneous
  Country: US (occurrence: US)
  Receive Date: 20170703
  Receipt Date: 20170703
  Transmission Date: 20171127
  Serious: No
  Sender: FDA-Public Use
  Company Number: None

PATIENT
  Age: 81 Year
  Sex: Male

DRUGS (2)
  1. EXJADE [Suspect]
     Active Substance: DEFERASIROX
     Indication: HAEMOCHROMATOSIS
     Route: 048
     Dates: start: 20170113
  2. EXJADE [Suspect]
     Active Substance: DEFERASIROX
     Indication: LYMPHOMA
     Route: 048
     Dates: start: 20170113

REACTIONS (1)
  - Headache [None]

NARRATIVE: CASE EVENT DATE: 20170625
